FAERS Safety Report 5366698-9 (Version None)
Quarter: 2007Q2

REPORT INFORMATION
  Report Type: 
  Country: None (occurrence: None)
  Receive Date: 20070622
  Receipt Date: 20060510
  Transmission Date: 20071010
  Serious: No
  Sender: FDA-Public Use
  Company Number: US-ASTRAZENECA-2006UW09232

PATIENT
  Sex: Female

DRUGS (5)
  1. RHINOCORT [Suspect]
     Route: 045
  2. PREMARIN [Concomitant]
  3. NORVASC [Concomitant]
  4. ASPIRIN [Concomitant]
  5. FE [Concomitant]

REACTIONS (1)
  - PARAESTHESIA [None]
